FAERS Safety Report 15458612 (Version 1)
Quarter: 2018Q4

REPORT INFORMATION
  Report Type: Spontaneous
  Country: US (occurrence: US)
  Receive Date: 20181003
  Receipt Date: 20181003
  Transmission Date: 20190204
  Serious: No
  Sender: FDA-Public Use
  Company Number: US-009507513-1810USA000055

PATIENT
  Age: 18 Year
  Sex: Female
  Weight: 130 kg

DRUGS (1)
  1. NEXPLANON [Suspect]
     Active Substance: ETONOGESTREL
     Dosage: 1 ROD EVERY 3 YEARS
     Route: 059
     Dates: start: 201803

REACTIONS (2)
  - Device deployment issue [Not Recovered/Not Resolved]
  - Administration site laceration [Unknown]

NARRATIVE: CASE EVENT DATE: 2018
